FAERS Safety Report 11051085 (Version 2)
Quarter: 2015Q2

REPORT INFORMATION
  Report Type: Spontaneous
  Country: US (occurrence: US)
  Receive Date: 20150421
  Receipt Date: 20150430
  Transmission Date: 20150821
  Serious: Yes (Hospitalization)
  Sender: FDA-Public Use
  Company Number: US-UNITED THERAPEUTICS-UNT-2015-004373

PATIENT
  Age: 10 Month
  Sex: Female
  Weight: 6.35 kg

DRUGS (1)
  1. REMODULIN [Suspect]
     Active Substance: TREPROSTINIL
     Indication: PULMONARY HYPERTENSION
     Dosage: 0.0365 ?G/KG, CONTINUING
     Route: 058
     Dates: start: 20140722

REACTIONS (4)
  - Viral infection [Recovered/Resolved]
  - Respiratory distress [Recovered/Resolved]
  - Infusion site haemorrhage [Recovered/Resolved]
  - Infusion site bruising [Recovered/Resolved]

NARRATIVE: CASE EVENT DATE: 20150316
